FAERS Safety Report 6967734-6 (Version None)
Quarter: 2010Q3

REPORT INFORMATION
  Report Type: 
  Country: None (occurrence: None)
  Receive Date: 20100907
  Receipt Date: 20100827
  Transmission Date: 20110219
  Serious: Yes (Hospitalization, Other)
  Sender: FDA-Public Use
  Company Number: HQWYE126304FEB05

PATIENT
  Sex: Female
  Weight: 68.1 kg

DRUGS (3)
  1. PREMARIN [Suspect]
     Indication: MENOPAUSAL SYMPTOMS
  2. LEVOTHROID [Concomitant]
     Indication: THYROID NEOPLASM
  3. NORETHINDRONE ACETATE [Suspect]
     Indication: MENOPAUSAL SYMPTOMS

REACTIONS (1)
  - CONTRALATERAL BREAST CANCER [None]
